FAERS Safety Report 9062123 (Version 2)
Quarter: 2013Q1

REPORT INFORMATION
  Report Type: Spontaneous
  Country: US (occurrence: US)
  Receive Date: 20130206
  Receipt Date: 20130221
  Transmission Date: 20140127
  Serious: Yes (Hospitalization)
  Sender: FDA-Public Use
  Company Number: US-GILEAD-2013-0069269

PATIENT
  Sex: Female

DRUGS (3)
  1. LETAIRIS [Suspect]
     Indication: COR PULMONALE CHRONIC
     Dosage: 10 MG, QD
     Dates: start: 20120301
  2. TYVASO [Concomitant]
  3. REVATIO [Concomitant]

REACTIONS (4)
  - Depression [Unknown]
  - Anxiety [Unknown]
  - Malaise [Unknown]
  - Dizziness [Unknown]
